FAERS Safety Report 12989044 (Version 2)
Quarter: 2017Q1

REPORT INFORMATION
  Report Type: Report from Study
  Country: None (occurrence: US)
  Receive Date: 20161201
  Receipt Date: 20170222
  Transmission Date: 20170428
  Serious: Yes (Hospitalization, Other)
  Sender: FDA-Public Use
  Company Number: US-ABBVIE-16K-163-1787016-00

PATIENT
  Sex: Female

DRUGS (2)
  1. HUMIRA [Suspect]
     Active Substance: ADALIMUMAB
     Indication: PSORIASIS
     Route: 058
     Dates: end: 201612
  2. HUMIRA [Suspect]
     Active Substance: ADALIMUMAB
     Route: 058
     Dates: start: 20170108, end: 20170108

REACTIONS (23)
  - Neuropathy peripheral [Unknown]
  - Pyrexia [Unknown]
  - Urinary retention [Unknown]
  - Psoriasis [Unknown]
  - Lung disorder [Unknown]
  - Feeling abnormal [Unknown]
  - Fluid retention [Unknown]
  - Fall [Unknown]
  - Anxiety [Unknown]
  - Vulvovaginal mycotic infection [Unknown]
  - Pulmonary embolism [Unknown]
  - Post-traumatic pain [Unknown]
  - Diabetes mellitus [Unknown]
  - Tension [Unknown]
  - Cardiac disorder [Unknown]
  - Arthritis [Unknown]
  - Gastrooesophageal reflux disease [Unknown]
  - Hyperhidrosis [Unknown]
  - Fungal infection [Unknown]
  - Urinary tract infection [Unknown]
  - Heart rate increased [Unknown]
  - Blood iron decreased [Unknown]
  - Kidney infection [Unknown]

NARRATIVE: CASE EVENT DATE: 2016
